FAERS Safety Report 13929666 (Version 1)
Quarter: 2017Q3

REPORT INFORMATION
  Report Type: Spontaneous
  Country: JP (occurrence: JP)
  Receive Date: 20170901
  Receipt Date: 20170901
  Transmission Date: 20171127
  Serious: Yes (Other)
  Sender: FDA-Public Use
  Company Number: PHJP1997JP000964

PATIENT
  Age: 80 Year
  Sex: Male

DRUGS (2)
  1. SYMMETREL [Suspect]
     Active Substance: AMANTADINE HYDROCHLORIDE
     Indication: PRODUCT USED FOR UNKNOWN INDICATION
     Dosage: UNK
     Route: 065
  2. RIMACTANE [Suspect]
     Active Substance: RIFAMPIN
     Indication: PRODUCT USED FOR UNKNOWN INDICATION
     Dosage: UNK
     Route: 065

REACTIONS (6)
  - Delusion [Unknown]
  - Myoclonus [Unknown]
  - Hallucination, visual [Unknown]
  - Coma [Unknown]
  - Drug interaction [Unknown]
  - Encephalopathy [Unknown]
